FAERS Safety Report 8353480-3 (Version None)
Quarter: 2012Q2

REPORT INFORMATION
  Report Type: 
  Country: None (occurrence: None)
  Receive Date: 20120511
  Receipt Date: 20110412
  Transmission Date: 20120825
  Serious: No
  Sender: FDA-Public Use
  Company Number: US-GLAXOSMITHKLINE-A0922688A

PATIENT
  Age: 41 Year
  Sex: Female

DRUGS (3)
  1. TYKERB [Suspect]
     Indication: BRAIN NEOPLASM MALIGNANT
     Dosage: 4TAB PER DAY
     Route: 048
     Dates: start: 20110210
  2. SEIZURE MEDICATION [Concomitant]
  3. PAIN MEDICATION [Concomitant]

REACTIONS (3)
  - NAUSEA [None]
  - FATIGUE [None]
  - SWELLING FACE [None]
